FAERS Safety Report 24182265 (Version 1)
Quarter: 2024Q3

REPORT INFORMATION
  Report Type: Spontaneous
  Country: US (occurrence: US)
  Receive Date: 20240807
  Receipt Date: 20240807
  Transmission Date: 20241016
  Serious: No
  Sender: CHIESI
  Company Number: US-CHIESI-2024CHF02075

PATIENT
  Age: 73 Year
  Sex: Male

DRUGS (3)
  1. KENGREAL [Suspect]
     Active Substance: CANGRELOR
     Indication: Heparin-induced thrombocytopenia
     Dosage: UNK
     Route: 042
  2. KENGREAL [Suspect]
     Active Substance: CANGRELOR
     Indication: Off label use
  3. BIVALIRUDIN [Concomitant]
     Active Substance: BIVALIRUDIN
     Indication: Product used for unknown indication
     Dosage: UNK
     Route: 042

REACTIONS (2)
  - Off label use [Not Recovered/Not Resolved]
  - Off label use [Not Recovered/Not Resolved]
